FAERS Safety Report 4695035-8 (Version None)
Quarter: 2005Q2

REPORT INFORMATION
  Report Type: 
  Country: None (occurrence: None)
  Receive Date: 20050617
  Receipt Date: 20050602
  Transmission Date: 20051028
  Serious: Yes (Other)
  Sender: FDA-Public Use
  Company Number: 032-6

PATIENT
  Age: 57 Year
  Sex: Female

DRUGS (1)
  1. TEVETEN [Suspect]
     Indication: HYPERTENSION
     Dosage: 600 MG QD PO
     Route: 048
     Dates: start: 20040701, end: 20040701

REACTIONS (1)
  - DEPRESSION [None]
